FAERS Safety Report 13697529 (Version 1)
Quarter: 2017Q2

REPORT INFORMATION
  Report Type: Report from Study
  Country: GB (occurrence: GB)
  Receive Date: 20170628
  Receipt Date: 20170628
  Transmission Date: 20170830
  Serious: Yes (Other)
  Sender: FDA-Public Use
  Company Number: GB-JNJFOC-20170620601

PATIENT
  Age: 57 Year
  Sex: Female

DRUGS (1)
  1. SIMPONI [Suspect]
     Active Substance: GOLIMUMAB
     Indication: PRODUCT USED FOR UNKNOWN INDICATION
     Route: 058

REACTIONS (7)
  - Pain [Unknown]
  - Frequent bowel movements [Unknown]
  - Haematochezia [Unknown]
  - Lower respiratory tract infection [Unknown]
  - Nausea [Unknown]
  - Infection [Unknown]
  - Lethargy [Unknown]

NARRATIVE: CASE EVENT DATE: 2017
